FAERS Safety Report 14791030 (Version 1)
Quarter: 2018Q2

REPORT INFORMATION
  Report Type: Spontaneous
  Country: US (occurrence: US)
  Receive Date: 20180413
  Receipt Date: 20180413
  Transmission Date: 20180711
  Serious: Yes (Hospitalization, Disabling)
  Sender: FDA-Public Use
  Company Number: None

PATIENT
  Age: 50 Year
  Sex: Female
  Weight: 76.5 kg

DRUGS (13)
  1. XANAX [Suspect]
     Active Substance: ALPRAZOLAM
     Indication: POST-TRAUMATIC STRESS DISORDER
  2. VALIUM [Suspect]
     Active Substance: DIAZEPAM
     Indication: ATTENTION DEFICIT/HYPERACTIVITY DISORDER
     Route: 048
  3. GUANFACINE. [Concomitant]
     Active Substance: GUANFACINE
  4. KLONIPIN [Concomitant]
     Active Substance: CLONAZEPAM
  5. IBUPROFEN. [Concomitant]
     Active Substance: IBUPROFEN
  6. VALIUM [Suspect]
     Active Substance: DIAZEPAM
     Indication: ANXIETY
     Route: 048
  7. WELLBUTRIN SR [Concomitant]
     Active Substance: BUPROPION HYDROCHLORIDE
  8. BACLOFEN. [Concomitant]
     Active Substance: BACLOFEN
  9. XANAX [Suspect]
     Active Substance: ALPRAZOLAM
     Indication: ANXIETY
  10. XANAX [Suspect]
     Active Substance: ALPRAZOLAM
     Indication: DEPRESSION
  11. VALIUM [Suspect]
     Active Substance: DIAZEPAM
     Indication: DEPRESSION
     Route: 048
  12. HYDROXYZINE [Concomitant]
     Active Substance: HYDROXYZINE HYDROCHLORIDE
  13. TYLENOL [Concomitant]
     Active Substance: ACETAMINOPHEN

REACTIONS (14)
  - Fear [None]
  - Suicidal ideation [None]
  - Pain in jaw [None]
  - Stomatitis [None]
  - Headache [None]
  - Ear discomfort [None]
  - Tinnitus [None]
  - Withdrawal syndrome [None]
  - Pain [None]
  - Decreased appetite [None]
  - Anxiety [None]
  - Impaired quality of life [None]
  - Paranoia [None]
  - Muscle spasms [None]

NARRATIVE: CASE EVENT DATE: 20160911
